FAERS Safety Report 6168320-0 (Version None)
Quarter: 2009Q2

REPORT INFORMATION
  Report Type: 
  Country: None (occurrence: None)
  Receive Date: 20090424
  Receipt Date: 20090424
  Transmission Date: 20091009
  Serious: Yes (Disabling)
  Sender: FDA-Public Use
  Company Number: None

PATIENT
  Age: 74 Year
  Sex: Female
  Weight: 94.8018 kg

DRUGS (2)
  1. TORSEMIDE [Suspect]
     Indication: HYPERTENSION
     Dosage: 1 PO
     Route: 048
     Dates: start: 20020402, end: 20050502
  2. TORSEMIDE [Suspect]
     Indication: OEDEMA
     Dosage: 1 PO
     Route: 048
     Dates: start: 20020402, end: 20050502

REACTIONS (4)
  - HYPERTENSION [None]
  - INCORRECT DOSE ADMINISTERED [None]
  - OEDEMA [None]
  - PRODUCT QUALITY ISSUE [None]
